FAERS Safety Report 24996154 (Version 1)
Quarter: 2025Q1

REPORT INFORMATION
  Report Type: Report from Study
  Country: US (occurrence: US)
  Receive Date: 20250221
  Receipt Date: 20250221
  Transmission Date: 20250409
  Serious: Yes (Hospitalization, Other)
  Sender: ABBVIE
  Company Number: US-ABBVIE-6140933

PATIENT
  Age: 71 Year
  Sex: Female
  Weight: 78 kg

DRUGS (1)
  1. LUMIGAN [Suspect]
     Active Substance: BIMATOPROST
     Indication: Ocular hypertension
     Dosage: 0.01MG
     Route: 047
     Dates: start: 2013

REACTIONS (6)
  - Vaginal haemorrhage [Recovered/Resolved]
  - Diarrhoea [Recovered/Resolved]
  - Viral infection [Recovered/Resolved]
  - Presyncope [Recovered/Resolved]
  - Urinary tract infection [Recovered/Resolved]
  - Vaginal discharge [Recovering/Resolving]

NARRATIVE: CASE EVENT DATE: 20220101
